FAERS Safety Report 15530455 (Version 1)
Quarter: 2018Q4

REPORT INFORMATION
  Report Type: Spontaneous
  Country: US (occurrence: US)
  Receive Date: 20181018
  Receipt Date: 20181018
  Transmission Date: 20190205
  Serious: Yes (Other)
  Sender: FDA-Public Use
  Company Number: US-PFIZER INC-2018416293

PATIENT
  Age: 51 Year
  Sex: Female

DRUGS (2)
  1. NEURONTIN [Suspect]
     Active Substance: GABAPENTIN
     Indication: AFFECTIVE DISORDER
     Dosage: UNK
  2. GABAPENTIN. [Suspect]
     Active Substance: GABAPENTIN
     Indication: AFFECTIVE DISORDER
     Dosage: UNK

REACTIONS (6)
  - Product use in unapproved indication [Unknown]
  - Withdrawal syndrome [Unknown]
  - Tremor [Not Recovered/Not Resolved]
  - Suicide attempt [Unknown]
  - Negative thoughts [Not Recovered/Not Resolved]
  - Dysstasia [Unknown]
